FAERS Safety Report 21446677 (Version 3)
Quarter: 2022Q4

REPORT INFORMATION
  Report Type: Report from Study
  Country: ES (occurrence: ES)
  Receive Date: 20221012
  Receipt Date: 20221122
  Transmission Date: 20230112
  Serious: Yes (Hospitalization)
  Sender: FDA-Public Use
  Company Number: ES-JNJFOC-20221004943

PATIENT
  Age: 62 Year
  Sex: Female
  Weight: 78.8 kg

DRUGS (20)
  1. TECLISTAMAB [Suspect]
     Active Substance: TECLISTAMAB
     Indication: Plasma cell myeloma
     Route: 058
     Dates: start: 20220913, end: 20220915
  2. TECLISTAMAB [Suspect]
     Active Substance: TECLISTAMAB
     Route: 058
     Dates: start: 20220919, end: 20220919
  3. DARATUMUMAB [Suspect]
     Active Substance: DARATUMUMAB
     Indication: Plasma cell myeloma
     Route: 058
     Dates: start: 20220912, end: 20220919
  4. ACYCLOVIR [Concomitant]
     Active Substance: ACYCLOVIR
     Indication: Prophylaxis
     Route: 048
     Dates: start: 20220530
  5. ALLOPURINOL [Concomitant]
     Active Substance: ALLOPURINOL
     Indication: Prophylaxis
     Route: 048
     Dates: start: 20220912
  6. ERGOCALCIFEROL [Concomitant]
     Active Substance: ERGOCALCIFEROL
     Indication: Osteoporosis prophylaxis
     Route: 048
     Dates: start: 20220926
  7. NEUPOGEN [Concomitant]
     Active Substance: FILGRASTIM
     Indication: Neutropenia
     Route: 058
     Dates: start: 20220926, end: 20221002
  8. NEUPOGEN [Concomitant]
     Active Substance: FILGRASTIM
     Route: 058
     Dates: start: 20221003, end: 20221003
  9. NEUPOGEN [Concomitant]
     Active Substance: FILGRASTIM
     Route: 058
     Dates: start: 20221006, end: 20221009
  10. NEUPOGEN [Concomitant]
     Active Substance: FILGRASTIM
     Route: 058
     Dates: start: 20221013, end: 20221013
  11. EPREX [Concomitant]
     Active Substance: ERYTHROPOIETIN
     Indication: Anaemia
     Route: 058
     Dates: start: 20220926, end: 20221113
  12. OMEPRAZOLE [Concomitant]
     Active Substance: OMEPRAZOLE
     Indication: Gastritis prophylaxis
     Route: 048
     Dates: start: 20220926
  13. LEVOFLOXACIN [Concomitant]
     Active Substance: LEVOFLOXACIN
     Indication: Infection prophylaxis
     Route: 048
     Dates: start: 20220926, end: 20220930
  14. CALCIUM PHOSPHATE [Concomitant]
     Active Substance: CALCIUM PHOSPHATE
     Indication: Osteoporosis prophylaxis
     Route: 048
     Dates: start: 20220926
  15. FENTANYL [Concomitant]
     Active Substance: FENTANYL
     Indication: Back pain
     Route: 048
  16. FENTANYL [Concomitant]
     Active Substance: FENTANYL
     Route: 062
  17. PIPERACILLIN [Concomitant]
     Active Substance: PIPERACILLIN
     Indication: Pyrexia
     Route: 042
     Dates: start: 20220927, end: 20220927
  18. TAZOBACTAM [Concomitant]
     Active Substance: TAZOBACTAM
     Indication: Pyrexia
     Route: 042
     Dates: start: 20220927, end: 20220927
  19. CEFDITOREN [Concomitant]
     Active Substance: CEFDITOREN
     Indication: Pyrexia
     Route: 048
     Dates: start: 20220927, end: 20221003
  20. ACETAMINOPHEN [Concomitant]
     Active Substance: ACETAMINOPHEN
     Indication: Pyrexia
     Route: 048
     Dates: start: 20220927, end: 20221003

REACTIONS (1)
  - Febrile neutropenia [Recovering/Resolving]

NARRATIVE: CASE EVENT DATE: 20221003
